FAERS Safety Report 11654254 (Version 2)
Quarter: 2015Q4

REPORT INFORMATION
  Report Type: Spontaneous
  Country: AT (occurrence: AT)
  Receive Date: 20151023
  Receipt Date: 20151116
  Transmission Date: 20160304
  Serious: Yes (Other)
  Sender: FDA-Public Use
  Company Number: AT-AMGEN-AUTSP2015110179

PATIENT
  Age: 72 Year
  Sex: Female
  Weight: 48 kg

DRUGS (5)
  1. XGEVA [Suspect]
     Active Substance: DENOSUMAB
     Indication: BREAST CANCER METASTATIC
     Dosage: 120 MG, Q4WK
     Route: 058
     Dates: start: 20141104
  2. XELODA [Concomitant]
     Active Substance: CAPECITABINE
     Dosage: UNK
     Dates: start: 201506
  3. AVASTIN [Concomitant]
     Active Substance: BEVACIZUMAB
     Dosage: 15 MG/M2, UNK
     Dates: start: 201507
  4. XGEVA [Suspect]
     Active Substance: DENOSUMAB
     Indication: METASTASES TO BONE
  5. KADCYLA [Concomitant]
     Active Substance: ADO-TRASTUZUMAB EMTANSINE
     Dosage: UNK
     Dates: start: 20141104

REACTIONS (10)
  - Osteonecrosis of jaw [Unknown]
  - Hepatic steatosis [Unknown]
  - Bone disorder [Unknown]
  - Pulmonary arterial hypertension [Unknown]
  - Lymph node calcification [Unknown]
  - Splenomegaly [Unknown]
  - Intestinal calcification [Unknown]
  - Pain [Unknown]
  - Lung disorder [Unknown]
  - Hepatic calcification [Unknown]

NARRATIVE: CASE EVENT DATE: 201506
